FAERS Safety Report 7386285-0 (Version None)
Quarter: 2011Q1

REPORT INFORMATION
  Report Type: 
  Country: None (occurrence: None)
  Receive Date: 20110331
  Receipt Date: 20110316
  Transmission Date: 20110831
  Serious: Yes (Hospitalization, Other)
  Sender: FDA-Public Use
  Company Number: PHHY2011FR22889

PATIENT
  Sex: Male

DRUGS (4)
  1. PREVISCAN [Suspect]
     Dosage: 1 DF, QD
     Dates: start: 20070109
  2. COTAREG [Suspect]
     Dosage: UNK
     Dates: start: 20021201, end: 20070413
  3. DILTIAZEM [Suspect]
     Indication: HYPERTENSION
     Dosage: 200 MG, QD
     Dates: start: 20070109
  4. FLUDEX [Suspect]
     Dosage: 1 DF, UNK
     Dates: start: 20070109, end: 20070413

REACTIONS (14)
  - ANGIOPATHY [None]
  - RENAL TUBULAR DISORDER [None]
  - PROTEINURIA [None]
  - BLOOD CREATINE INCREASED [None]
  - INFLAMMATION [None]
  - RENAL FAILURE ACUTE [None]
  - OEDEMA PERIPHERAL [None]
  - PRURITUS [None]
  - RENAL TUBULAR NECROSIS [None]
  - CORONARY ARTERY DISEASE [None]
  - PULMONARY HYPERTENSION [None]
  - DYSPNOEA [None]
  - RENAL IMPAIRMENT [None]
  - SKIN LESION [None]
